FAERS Safety Report 6906493-X (Version None)
Quarter: 2010Q3

REPORT INFORMATION
  Report Type: 
  Country: None (occurrence: None)
  Receive Date: 20100804
  Receipt Date: 20100723
  Transmission Date: 20110219
  Serious: Yes (Hospitalization)
  Sender: FDA-Public Use
  Company Number: US-PFIZER INC-2010092892

PATIENT
  Sex: Female
  Weight: 63.492 kg

DRUGS (3)
  1. NEURONTIN [Suspect]
     Indication: NEUROPATHY PERIPHERAL
     Dosage: UNK
  2. IMURAN [Concomitant]
     Indication: AUTOIMMUNE DISORDER
     Dosage: 150 MG, UNK
     Route: 048
  3. PLAQUENIL [Concomitant]
     Indication: AUTOIMMUNE DISORDER
     Dosage: UNK

REACTIONS (1)
  - ABDOMINAL DISCOMFORT [None]
